FAERS Safety Report 25742392 (Version 2)
Quarter: 2025Q3

REPORT INFORMATION
  Report Type: Spontaneous
  Country: JP (occurrence: JP)
  Receive Date: 20250829
  Receipt Date: 20250907
  Transmission Date: 20251021
  Serious: No
  Sender: AMGEN
  Company Number: JP-KYOWAKIRIN-2025KK016502

PATIENT

DRUGS (1)
  1. DARBEPOETIN ALFA [Suspect]
     Active Substance: DARBEPOETIN ALFA
     Indication: Myelodysplastic syndrome
     Route: 058

REACTIONS (1)
  - Haemoglobin decreased [Unknown]
